FAERS Safety Report 18016658 (Version 2)
Quarter: 2020Q3

REPORT INFORMATION
  Report Type: Report from Study
  Country: US (occurrence: US)
  Receive Date: 20200713
  Receipt Date: 20200714
  Transmission Date: 20201103
  Serious: No
  Sender: FDA-Public Use
  Company Number: US-VANDA PHARMACEUTICALS, INC-2020TASUS003740

PATIENT
  Sex: Female

DRUGS (1)
  1. HETLIOZ [Suspect]
     Active Substance: TASIMELTEON
     Indication: NON-24-HOUR SLEEP-WAKE DISORDER
     Dosage: 20 MG, QD
     Route: 048
     Dates: start: 201809

REACTIONS (2)
  - Drug ineffective [Unknown]
  - Therapeutic product effect decreased [Unknown]
